FAERS Safety Report 7942839-1 (Version None)
Quarter: 2011Q4

REPORT INFORMATION
  Report Type: 
  Country: None (occurrence: None)
  Receive Date: 20111128
  Receipt Date: 20111117
  Transmission Date: 20120403
  Serious: Yes (Hospitalization)
  Sender: FDA-Public Use
  Company Number: FR-UCBSA-046059

PATIENT
  Age: 37 Year
  Sex: Male

DRUGS (3)
  1. VIMPAT [Suspect]
     Indication: LENNOX-GASTAUT SYNDROME
     Route: 048
  2. LAMOTRIGINE [Concomitant]
     Indication: LENNOX-GASTAUT SYNDROME
     Route: 048
  3. ZONISAMIDE [Concomitant]
     Indication: LENNOX-GASTAUT SYNDROME
     Route: 048

REACTIONS (3)
  - MENTAL IMPAIRMENT [None]
  - CONVULSION [None]
  - COGNITIVE DISORDER [None]
